FAERS Safety Report 13143460 (Version 3)
Quarter: 2017Q2

REPORT INFORMATION
  Report Type: Spontaneous
  Country: ES (occurrence: ES)
  Receive Date: 20170124
  Receipt Date: 20170630
  Transmission Date: 20170830
  Serious: Yes (Other)
  Sender: FDA-Public Use
  Company Number: ES-BAYER-2017-012333

PATIENT
  Age: 77 Year
  Sex: Female
  Weight: 49 kg

DRUGS (1)
  1. ULTRAVIST [Suspect]
     Active Substance: IOPROMIDE
     Indication: ANGIOGRAM PERIPHERAL
     Dosage: 140 ML, ONCE (ULTRAVIST INFUSION TIME WAS: 28 SEC.)
     Route: 042

REACTIONS (3)
  - Noninfective sialoadenitis [Unknown]
  - Inflammation [Unknown]
  - Contrast media reaction [Unknown]

NARRATIVE: CASE EVENT DATE: 201701
